FAERS Safety Report 23644302 (Version 1)
Quarter: 2024Q1

REPORT INFORMATION
  Report Type: Spontaneous
  Country: FR (occurrence: FR)
  Receive Date: 20240318
  Receipt Date: 20240318
  Transmission Date: 20240410
  Serious: Yes (Hospitalization)
  Sender: FDA-Public Use
  Company Number: None

PATIENT
  Age: 76 Year
  Sex: Male
  Weight: 73 kg

DRUGS (7)
  1. TRILEPTAL [Suspect]
     Active Substance: OXCARBAZEPINE
     Indication: Myoclonus
     Dosage: 150 MG, QD (AUGMENTATION DOSAGE PAR PALLIER CROISSANT (DE 150 MG ? 2400 MG))
     Route: 048
     Dates: start: 20230905, end: 20230913
  2. CLOBAZAM [Suspect]
     Active Substance: CLOBAZAM
     Indication: Myoclonus
     Dosage: UNK (NON RENSEIGN?E)
     Route: 048
     Dates: start: 20230905, end: 20230928
  3. ATORVASTATIN [Concomitant]
     Active Substance: ATORVASTATIN
     Indication: Product used for unknown indication
     Dosage: UNK
     Route: 065
  4. KEPPRA [Concomitant]
     Active Substance: LEVETIRACETAM
     Indication: Product used for unknown indication
     Dosage: UNK
     Route: 065
  5. AMLODIPINE [Concomitant]
     Active Substance: AMLODIPINE BESYLATE
     Indication: Product used for unknown indication
     Dosage: UNK
     Route: 065
  6. RAMIPRIL [Concomitant]
     Active Substance: RAMIPRIL
     Indication: Product used for unknown indication
     Dosage: UNK
     Route: 065
  7. MIRTAZAPINE [Concomitant]
     Active Substance: MIRTAZAPINE
     Indication: Product used for unknown indication
     Dosage: UNK
     Route: 065

REACTIONS (3)
  - Coma [Recovered/Resolved]
  - Overdose [Recovered/Resolved]
  - Blood electrolytes abnormal [Recovered/Resolved]

NARRATIVE: CASE EVENT DATE: 20230913
